FAERS Safety Report 10224733 (Version 1)
Quarter: 2014Q2

REPORT INFORMATION
  Report Type: Spontaneous
  Country: BE (occurrence: BE)
  Receive Date: 20140609
  Receipt Date: 20140609
  Transmission Date: 20141212
  Serious: Yes (Other)
  Sender: FDA-Public Use
  Company Number: BE-MYLANLABS-2014S1012858

PATIENT
  Age: 46 Year
  Sex: Male

DRUGS (1)
  1. OLANZAPINE [Suspect]
     Route: 030

REACTIONS (2)
  - Post-injection delirium sedation syndrome [Unknown]
  - Incorrect route of drug administration [Unknown]
